FAERS Safety Report 8249287-8 (Version None)
Quarter: 2012Q2

REPORT INFORMATION
  Report Type: 
  Country: None (occurrence: None)
  Receive Date: 20120402
  Receipt Date: 20120323
  Transmission Date: 20120825
  Serious: Yes (Other)
  Sender: FDA-Public Use
  Company Number: US-BAYER-2011-022272

PATIENT
  Age: 17 Year
  Sex: Female
  Weight: 65 kg

DRUGS (15)
  1. DROSPIRENONE AND ETHINYL ESTRADIOL [Suspect]
     Dosage: UNK
     Dates: start: 20080701, end: 20080901
  2. DIAZEPAM [Concomitant]
     Dosage: 2 MG, UNK
     Route: 048
     Dates: start: 20080513
  3. LEVAQUIN [Concomitant]
     Dosage: 500 MG, UNK
     Route: 048
  4. CYMBALTA [Concomitant]
     Dosage: 60 MG, UNK
     Route: 048
     Dates: start: 20080414, end: 20090314
  5. NEXIUM [Concomitant]
     Route: 048
  6. DARVOCET-N 50 [Concomitant]
  7. FLEXERIL [Concomitant]
     Dosage: UNK UNK, PRN
  8. TRAZODONE HCL [Concomitant]
     Dosage: 50 MG, UNK
     Route: 048
     Dates: start: 20080528
  9. PERCOCET [Concomitant]
     Indication: PAIN
  10. KETOPROFEN [Concomitant]
     Dosage: UNK UNK, PRN
  11. PROTONIX [Concomitant]
  12. YASMIN [Suspect]
     Dosage: UNK
     Route: 048
     Dates: start: 20071101, end: 20080601
  13. FLUCONAZOLE [Concomitant]
     Dosage: 150 MG, UNK
     Route: 048
     Dates: start: 20080526
  14. DROSPIRENONE AND ETHINYL ESTRADIOL [Suspect]
     Dosage: UNK
     Dates: start: 20081101, end: 20090801
  15. DILAUDID [Concomitant]

REACTIONS (10)
  - CHOLECYSTITIS CHRONIC [None]
  - CONSTIPATION [None]
  - DYSPEPSIA [None]
  - DEPRESSION [None]
  - GALLBLADDER DISORDER [None]
  - ANXIETY [None]
  - SCAR [None]
  - ABDOMINAL DISTENSION [None]
  - FLATULENCE [None]
  - BILIARY DYSKINESIA [None]
